FAERS Safety Report 23979831 (Version 5)
Quarter: 2024Q3

REPORT INFORMATION
  Report Type: Report from Study
  Country: US (occurrence: US)
  Receive Date: 20240616
  Receipt Date: 20240803
  Transmission Date: 20241017
  Serious: Yes (Hospitalization, Other)
  Sender: ABBVIE
  Company Number: US-ABBVIE-5371405

PATIENT
  Sex: Female
  Weight: 70.76 kg

DRUGS (32)
  1. HUMIRA [Suspect]
     Active Substance: ADALIMUMAB
     Indication: Crohn^s disease
     Route: 058
     Dates: start: 201301, end: 202301
  2. PRAVASTATIN [Concomitant]
     Active Substance: PRAVASTATIN
     Indication: Crohn^s disease
  3. REMICADE [Concomitant]
     Active Substance: INFLIXIMAB
     Indication: Crohn^s disease
  4. PEPCID AC [Concomitant]
     Active Substance: FAMOTIDINE
     Indication: Product used for unknown indication
     Dosage: AS NEEDED
  5. TYLENOL [Concomitant]
     Active Substance: ACETAMINOPHEN
     Indication: Product used for unknown indication
     Dosage: 500 MG, AS NEEDED
     Dates: start: 20240102
  6. CALCIUM [Concomitant]
     Active Substance: CALCIUM
     Indication: Product used for unknown indication
     Dosage: ADORABLE 1200MG/25MG, AM
  7. COENZYME Q10 [Concomitant]
     Active Substance: DIETARY SUPPLEMENT\UBIDECARENONE
     Indication: Product used for unknown indication
     Dosage: 100 MG, AM
  8. SYNTHROID [Concomitant]
     Active Substance: LEVOTHYROXINE SODIUM
     Indication: Product used for unknown indication
     Dosage: 100 MG
  9. TRIAMTERENE AND HYDROCHLOROTHIAZIDE [Concomitant]
     Active Substance: HYDROCHLOROTHIAZIDE\TRIAMTERENE
     Indication: Product used for unknown indication
     Dosage: 25 MG CAPSULE
  10. POTCHLOR [Concomitant]
     Indication: Product used for unknown indication
     Dosage: (KLOR-CON M20)TABLET
  11. ZYRTEC [Concomitant]
     Active Substance: CETIRIZINE HYDROCHLORIDE
     Indication: Product used for unknown indication
     Dosage: 10 MG GENERIC
  12. PANTOPRAZOLE SODIUM [Concomitant]
     Active Substance: PANTOPRAZOLE SODIUM
     Indication: Product used for unknown indication
     Dosage: DR 40 MG
  13. FLOVENT [Concomitant]
     Active Substance: FLUTICASONE PROPIONATE
     Indication: Product used for unknown indication
     Dosage: INHALER 220 MCG, 2 PUFF
  14. ASPIRIN [Concomitant]
     Active Substance: ASPIRIN
     Indication: Product used for unknown indication
  15. SINGULAIR [Concomitant]
     Active Substance: MONTELUKAST SODIUM
     Indication: Product used for unknown indication
     Dosage: 10 MG, PM
  16. FLONASE [Concomitant]
     Active Substance: FLUTICASONE PROPIONATE
     Indication: Product used for unknown indication
     Dosage: AM, 1 SPRAY EACH NOSTRIL EVERY 4 WEEKS FOR 3 TIMES LAST
  17. LOPERAMIDE [Concomitant]
     Active Substance: LOPERAMIDE
     Indication: Product used for unknown indication
     Dosage: OVER THE COUNTER, AM + PM
  18. FAMOTIDINE [Concomitant]
     Active Substance: FAMOTIDINE
     Indication: Product used for unknown indication
     Dosage: 20 MG, PM
  19. CHOLESTYRAMINE [Concomitant]
     Active Substance: CHOLESTYRAMINE
     Indication: Product used for unknown indication
     Dosage: E PACKET, 4 GRAMS, AS NEEDED, 3 TIMES A DAY
  20. IPRATROPIUM [Concomitant]
     Active Substance: IPRATROPIUM
     Indication: Product used for unknown indication
     Dosage: 3 ML, AS NEEDED, 1 VIAL 4 TIMES
  21. ALBUTEROL [Concomitant]
     Active Substance: ALBUTEROL
     Indication: Product used for unknown indication
     Dosage: 3 ML, AS NEEDED, 1 VIAL 4 TIMES
  22. VENTOLIN [Concomitant]
     Active Substance: ALBUTEROL SULFATE
     Indication: Product used for unknown indication
     Dosage: AS NEEDED, 2 PUFFS 4 TIMES
  23. METHOCARBAMOL [Concomitant]
     Active Substance: METHOCARBAMOL
     Indication: Product used for unknown indication
     Dosage: 500 MG, AS NEEDED
  24. TRAMADOL [Concomitant]
     Active Substance: TRAMADOL\TRAMADOL HYDROCHLORIDE
     Indication: Product used for unknown indication
     Dosage: 30 MG, AS NEEDED
  25. BENADRYL [Concomitant]
     Active Substance: DIPHENHYDRAMINE HYDROCHLORIDE
     Indication: Product used for unknown indication
     Dosage: 25 MG, AS NEEDED
     Dates: start: 20240102
  26. GLUCOSAMINE MSM [Concomitant]
     Indication: Product used for unknown indication
     Dosage: CONDROTIN, 1500 MG, AM + PM
  27. VITAMIN C [Concomitant]
     Active Substance: ASCORBIC ACID
     Indication: Product used for unknown indication
     Dosage: GUMMIES, 250 MG
  28. MEGA B-50 [Concomitant]
     Indication: Product used for unknown indication
     Dosage: AM
  29. VITAMIN D3 [Concomitant]
     Active Substance: CHOLECALCIFEROL
     Indication: Product used for unknown indication
     Dosage: 2000 IU, AM
  30. Vitamin b12 gummies [Concomitant]
     Indication: Product used for unknown indication
     Dosage: 1000 MCG, AM
  31. ZINC [Concomitant]
     Active Substance: ZINC
     Indication: Product used for unknown indication
     Dosage: 50 MG, AM
  32. FISH OIL [Concomitant]
     Active Substance: FISH OIL
     Indication: Product used for unknown indication
     Dosage: 1200 MG, AM

REACTIONS (15)
  - Stomal hernia [Unknown]
  - Fatigue [Not Recovered/Not Resolved]
  - Hernia [Recovered/Resolved]
  - Rehabilitation therapy [Not Recovered/Not Resolved]
  - Crohn^s disease [Recovered/Resolved]
  - Surgery [Unknown]
  - COVID-19 [Recovered/Resolved]
  - Adverse food reaction [Not Recovered/Not Resolved]
  - Unevaluable event [Unknown]
  - Fistula [Not Recovered/Not Resolved]
  - Device related infection [Recovered/Resolved]
  - Stoma site discharge [Unknown]
  - Postoperative wound infection [Recovered/Resolved]
  - Stoma creation [Unknown]
  - Impaired healing [Unknown]

NARRATIVE: CASE EVENT DATE: 20230101
